FAERS Safety Report 12559000 (Version 1)
Quarter: 2016Q3

REPORT INFORMATION
  Report Type: Report from Study
  Country: US (occurrence: US)
  Receive Date: 20160715
  Receipt Date: 20160715
  Transmission Date: 20161109
  Serious: Yes (Other)
  Sender: FDA-Public Use
  Company Number: US-JNJFOC-20160415446

PATIENT
  Age: 69 Year
  Sex: Female

DRUGS (6)
  1. IMBRUVICA [Suspect]
     Active Substance: IBRUTINIB
     Indication: CHRONIC LYMPHOCYTIC LEUKAEMIA
     Route: 048
  2. AMLODIPINE [Concomitant]
     Active Substance: AMLODIPINE BESYLATE
  3. PREMARIN [Concomitant]
     Active Substance: ESTROGENS, CONJUGATED
     Route: 067
  4. LEVOTHYROXINE SODIUM STAT RX [Concomitant]
     Dosage: 75 MCG, QD
  5. IMBRUVICA [Suspect]
     Active Substance: IBRUTINIB
     Indication: CHRONIC LYMPHOCYTIC LEUKAEMIA
     Route: 048
     Dates: start: 20150115, end: 20150911
  6. METOPROLOL. [Concomitant]
     Active Substance: METOPROLOL

REACTIONS (1)
  - Intraductal proliferative breast lesion [Recovered/Resolved]

NARRATIVE: CASE EVENT DATE: 201603
